FAERS Safety Report 8480128-X (Version None)
Quarter: 2012Q2

REPORT INFORMATION
  Report Type: 
  Country: None (occurrence: None)
  Receive Date: 20120629
  Receipt Date: 20120620
  Transmission Date: 20120825
  Serious: Yes (Other)
  Sender: FDA-Public Use
  Company Number: CA-ASTRAZENECA-2012SE03156

PATIENT
  Age: 65 Year
  Sex: Male

DRUGS (2)
  1. BRICANYL [Suspect]
     Indication: ASTHMA
     Route: 055
  2. PULMICORT [Suspect]
     Indication: ASTHMA
     Dosage: 2X200 MCG BID TOTAL OF 800 MCG
     Route: 055

REACTIONS (2)
  - DYSPNOEA [None]
  - DRUG INEFFECTIVE [None]
